FAERS Safety Report 6570265-9 (Version None)
Quarter: 2010Q1

REPORT INFORMATION
  Report Type: 
  Country: None (occurrence: None)
  Receive Date: 20100204
  Receipt Date: 20100126
  Transmission Date: 20100710
  Serious: Yes (Hospitalization)
  Sender: FDA-Public Use
  Company Number: IT-PFIZER INC-2010012566

PATIENT
  Age: 57 Year
  Sex: Male

DRUGS (2)
  1. SUNITINIB MALATE [Suspect]
     Indication: RENAL CANCER
     Dosage: 50 MG, 1X/DAY
     Route: 048
     Dates: start: 20081212, end: 20090820
  2. RABEPRAZOLE SODIUM [Suspect]
     Dosage: 1 UNIT DOSE, 1X/DAY
     Route: 048
     Dates: start: 20081224, end: 20091020

REACTIONS (3)
  - ARTHRALGIA [None]
  - ERYTHEMA MULTIFORME [None]
  - PLATELET COUNT DECREASED [None]
